FAERS Safety Report 8625552-7 (Version None)
Quarter: 2012Q3

REPORT INFORMATION
  Report Type: 
  Country: None (occurrence: None)
  Receive Date: 20120827
  Receipt Date: 20120816
  Transmission Date: 20120928
  Serious: Yes (Hospitalization, Other)
  Sender: FDA-Public Use
  Company Number: US-VERTEX PHARMACEUTICAL INC.-2012-019681

PATIENT
  Sex: Male
  Weight: 77 kg

DRUGS (3)
  1. RIBAVIRIN [Concomitant]
     Indication: HEPATITIS C
     Dosage: 1000 MG, QD
     Route: 048
     Dates: start: 20120523, end: 20120713
  2. INCIVEK [Suspect]
     Indication: HEPATITIS C
     Dosage: 750 MG, TID
     Route: 048
     Dates: start: 20120523, end: 20120713
  3. PEGASYS [Concomitant]
     Indication: HEPATITIS C
     Dosage: 180 A?G, UNK
     Route: 058
     Dates: start: 20120523, end: 20120713

REACTIONS (4)
  - PLATELET COUNT DECREASED [None]
  - PNEUMONIA [None]
  - HAEMORRHAGE [None]
  - LIVER DISORDER [None]
